FAERS Safety Report 10224941 (Version 1)
Quarter: 2014Q2

REPORT INFORMATION
  Report Type: Report from Study
  Country: DE (occurrence: DE)
  Receive Date: 20140609
  Receipt Date: 20140609
  Transmission Date: 20141212
  Serious: Yes (Hospitalization)
  Sender: FDA-Public Use
  Company Number: DE-BRISTOL-MYERS SQUIBB COMPANY-20941548

PATIENT
  Age: 80 Year
  Sex: Male
  Weight: 67 kg

DRUGS (2)
  1. ERBITUX SOLN FOR INF 5MG/ML [Suspect]
     Indication: COLORECTAL CANCER METASTATIC
     Dosage: UNK-UNK:250MG/M2, 1 IN 1 WEEK
     Route: 042
     Dates: start: 20140319, end: 20140319
  2. IRINOTECAN [Concomitant]
     Indication: COLORECTAL CANCER METASTATIC
     Route: 042
     Dates: start: 20140319, end: 20140430

REACTIONS (1)
  - Hydronephrosis [Recovered/Resolved]
